FAERS Safety Report 7683697-2 (Version None)
Quarter: 2011Q3

REPORT INFORMATION
  Report Type: 
  Country: None (occurrence: None)
  Receive Date: 20110815
  Receipt Date: 20110810
  Transmission Date: 20111222
  Serious: Yes (Hospitalization)
  Sender: FDA-Public Use
  Company Number: US-B.I. PHARMACEUTICALS,INC./RIDGEFIELD-2011-BP-19679BP

PATIENT
  Sex: Female

DRUGS (8)
  1. FUROSEMIDE [Concomitant]
     Indication: OEDEMA
     Dates: start: 19900101
  2. COREG [Concomitant]
     Indication: CARDIAC FAILURE CONGESTIVE
     Dates: start: 19900101
  3. LESCOL [Concomitant]
     Indication: BLOOD CHOLESTEROL INCREASED
     Dates: start: 20060101
  4. POTASSIUM [Concomitant]
     Indication: BLOOD POTASSIUM ABNORMAL
     Dates: start: 19900101
  5. DIGOXIN [Concomitant]
     Indication: ATRIAL FIBRILLATION
     Dates: start: 19950101
  6. FUROSEMIDE [Concomitant]
     Indication: CARDIAC FAILURE CONGESTIVE
  7. PRADAXA [Suspect]
     Indication: ATRIAL FIBRILLATION
     Dosage: 300 MG
     Route: 048
     Dates: start: 20110201
  8. SOTALOL HCL [Concomitant]
     Indication: ATRIAL FIBRILLATION
     Dates: start: 20110201

REACTIONS (2)
  - GASTRITIS [None]
  - OESOPHAGEAL SPASM [None]
